FAERS Safety Report 9735603 (Version 4)
Quarter: 2014Q1

REPORT INFORMATION
  Report Type: Report from Study
  Country: JP (occurrence: JP)
  Receive Date: 20131206
  Receipt Date: 20140103
  Transmission Date: 20141002
  Serious: Yes (Hospitalization)
  Sender: FDA-Public Use
  Company Number: JP-SA-2013SA097615

PATIENT
  Age: 24 Year
  Sex: Female

DRUGS (6)
  1. EVOLTRA [Suspect]
     Indication: T-CELL TYPE ACUTE LEUKAEMIA
     Route: 042
     Dates: start: 20130918, end: 20130922
  2. THYRADIN-S [Concomitant]
     Indication: T-CELL TYPE ACUTE LEUKAEMIA
     Dosage: 50 MG / BODY/DAY DOSE:50 UNIT(S)
     Route: 048
  3. URSO [Concomitant]
     Indication: T-CELL TYPE ACUTE LEUKAEMIA
     Dosage: 600 MG/BODY/DAY DOSE:600 UNIT(S)
     Route: 048
  4. CERCINE [Concomitant]
     Indication: T-CELL TYPE ACUTE LEUKAEMIA
     Dosage: 10 MG/BODY/DAY DOSE:10 UNIT(S)
     Route: 042
     Dates: start: 20130920, end: 20130923
  5. NEO-MINOPHAGEN C [Concomitant]
     Indication: T-CELL TYPE ACUTE LEUKAEMIA
     Dosage: 60 MG/BODY/DAY DOSE:60 UNIT(S)
     Route: 042
     Dates: start: 20130921, end: 20131001
  6. MAXIPIME [Concomitant]
     Indication: T-CELL TYPE ACUTE LEUKAEMIA
     Dosage: 04 G/BODY/DAY DOSE:4 UNIT(S)
     Route: 042
     Dates: start: 20131004, end: 20131007

REACTIONS (5)
  - Liver disorder [Recovering/Resolving]
  - White blood cell count decreased [Recovering/Resolving]
  - Febrile neutropenia [Recovering/Resolving]
  - Neutrophil count decreased [Recovering/Resolving]
  - Platelet count decreased [Recovering/Resolving]
